FAERS Safety Report 24204563 (Version 1)
Quarter: 2024Q3

REPORT INFORMATION
  Report Type: Spontaneous
  Country: CN (occurrence: CN)
  Receive Date: 20240813
  Receipt Date: 20240813
  Transmission Date: 20241017
  Serious: Yes (Life-Threatening, Other)
  Sender: JIANGSU HANSOH PHARMACEUTICAL
  Company Number: CN-Jiangsu Hansoh Pharmaceutical Co., Ltd-2160341

PATIENT
  Age: 42 Year
  Sex: Female
  Weight: 60 kg

DRUGS (2)
  1. DECITABINE [Suspect]
     Active Substance: DECITABINE
     Indication: Leukaemia
     Route: 041
     Dates: start: 20240705, end: 20240708
  2. VENETOCLAX [Suspect]
     Active Substance: VENETOCLAX
     Route: 048
     Dates: start: 20240704, end: 20240710

REACTIONS (1)
  - Myelosuppression [Recovering/Resolving]

NARRATIVE: CASE EVENT DATE: 20240725
